FAERS Safety Report 6713271-3 (Version None)
Quarter: 2010Q2

REPORT INFORMATION
  Report Type: 
  Country: None (occurrence: None)
  Receive Date: 20100506
  Receipt Date: 20100504
  Transmission Date: 20101027
  Serious: Yes (Other)
  Sender: FDA-Public Use
  Company Number: BR-ROCHE-596554

PATIENT
  Sex: Female

DRUGS (2)
  1. FLANAX [Suspect]
     Indication: MIGRAINE
     Dosage: STRENGTH: 275 MG.
     Route: 065
     Dates: start: 20060101
  2. FLANAX [Suspect]
     Dosage: FIRST DOSE GIVEN AT 16.00 AND OTHER DOSE GIVEN BETWEEN 22.30 TO 00.00 HOURS. STRENGTH: 550MG
     Route: 065
     Dates: start: 20080101, end: 20080101

REACTIONS (6)
  - DIZZINESS [None]
  - LABYRINTHITIS [None]
  - NAUSEA [None]
  - NO ADVERSE EVENT [None]
  - TACHYCARDIA [None]
  - TREMOR [None]
